FAERS Safety Report 10071198 (Version 2)
Quarter: 2014Q2

REPORT INFORMATION
  Report Type: Spontaneous
  Country: US (occurrence: US)
  Receive Date: 20140410
  Receipt Date: 20140410
  Transmission Date: 20141212
  Serious: No
  Sender: FDA-Public Use
  Company Number: US-GALDERMA-US13002484

PATIENT
  Age: 61 Year
  Sex: Female

DRUGS (7)
  1. DIFFERIN (ADAPALENE) LOTION 0.1% [Suspect]
     Indication: ACNE
     Route: 061
     Dates: start: 2010
  2. DIFFERIN (ADAPALENE) GEL, 0.3% [Suspect]
     Indication: ACNE
     Route: 061
     Dates: start: 20121226, end: 20130109
  3. CETAPHIL DAILY FACIAL CLEANSER [Suspect]
     Indication: THERAPEUTIC SKIN CARE TOPICAL
     Route: 061
     Dates: start: 201302, end: 201302
  4. KLARON [Concomitant]
     Indication: ACNE
     Route: 061
  5. CETAPHIL GENTLE SKIN CLEANSER [Concomitant]
     Indication: THERAPEUTIC SKIN CARE TOPICAL
     Route: 061
  6. CLEOCIN T [Concomitant]
     Indication: ACNE
     Route: 061
  7. OIL OF OLAY MOISTURIZER SPF 15 [Concomitant]
     Indication: PROPHYLAXIS AGAINST SOLAR RADIATION
     Route: 061

REACTIONS (5)
  - Rash [Recovered/Resolved]
  - Skin exfoliation [Recovered/Resolved]
  - Dry skin [Recovered/Resolved]
  - Erythema [Recovered/Resolved]
  - Skin irritation [Not Recovered/Not Resolved]
